FAERS Safety Report 4666118-3 (Version None)
Quarter: 2005Q2

REPORT INFORMATION
  Report Type: 
  Country: None (occurrence: None)
  Receive Date: 20050519
  Receipt Date: 20050506
  Transmission Date: 20051028
  Serious: Yes (Death, Hospitalization, Disabling)
  Sender: FDA-Public Use
  Company Number: JP-JNJFOC-20050501884

PATIENT
  Age: 58 Year
  Sex: Male

DRUGS (3)
  1. TAVANIC [Suspect]
     Indication: PROPHYLAXIS
     Route: 049
     Dates: start: 20010201, end: 20010201
  2. VOLTAREN [Concomitant]
  3. SOLADEX [Concomitant]

REACTIONS (3)
  - CLOSTRIDIUM COLITIS [None]
  - INTESTINAL PERFORATION [None]
  - PNEUMONIA [None]
